FAERS Safety Report 8295545-0 (Version None)
Quarter: 2012Q2

REPORT INFORMATION
  Report Type: 
  Country: None (occurrence: None)
  Receive Date: 20120418
  Receipt Date: 20120416
  Transmission Date: 20120825
  Serious: Yes (Hospitalization, Other)
  Sender: FDA-Public Use
  Company Number: US-TEVA-300336USA

PATIENT
  Sex: Female
  Weight: 98.064 kg

DRUGS (12)
  1. METHYLPHENIDATE HYDROCHLORIDE SR [Concomitant]
  2. DOXYCYCLINE [Concomitant]
  3. CETIRIZINE HYDROCHLORIDE [Concomitant]
  4. COPAXONE [Suspect]
     Indication: MULTIPLE SCLEROSIS
     Dosage: 20 MILLIGRAM;
     Route: 058
     Dates: start: 20090903, end: 20110901
  5. OXCARBAZEPINE [Concomitant]
  6. ALPRAZOLAM [Concomitant]
  7. ARIPIPRAZOLE [Concomitant]
  8. MONTELUKAST [Concomitant]
  9. CITALOPRAM HYDROBROMIDE [Concomitant]
  10. DONEPEZIL HCL [Concomitant]
  11. TOPIRAMATE [Concomitant]
  12. GABAPENTIN [Concomitant]

REACTIONS (2)
  - DEEP VEIN THROMBOSIS [None]
  - PULMONARY EMBOLISM [None]
